FAERS Safety Report 19363242 (Version 2)
Quarter: 2021Q3

REPORT INFORMATION
  Report Type: Report from Study
  Country: CA (occurrence: CA)
  Receive Date: 20210603
  Receipt Date: 20210827
  Transmission Date: 20211014
  Serious: Yes (Other)
  Sender: FDA-Public Use
  Company Number: CA-IPSEN BIOPHARMACEUTICALS, INC.-2021-13691

PATIENT
  Age: 75 Year
  Sex: Male

DRUGS (4)
  1. LANSOPRAZOLE. [Concomitant]
     Active Substance: LANSOPRAZOLE
  2. VENTOLIN [Concomitant]
     Active Substance: ALBUTEROL SULFATE
  3. CLONAZEPAM. [Concomitant]
     Active Substance: CLONAZEPAM
  4. SOMATULINE AUTOGEL [Suspect]
     Active Substance: LANREOTIDE ACETATE
     Indication: NEUROENDOCRINE TUMOUR
     Route: 058
     Dates: start: 20200612

REACTIONS (4)
  - Pyrexia [Unknown]
  - Neoplasm malignant [Unknown]
  - Transfusion [Unknown]
  - Malaise [Unknown]

NARRATIVE: CASE EVENT DATE: 202105
